FAERS Safety Report 23573344 (Version 1)
Quarter: 2024Q1

REPORT INFORMATION
  Report Type: Spontaneous
  Country: RS (occurrence: RS)
  Receive Date: 20240228
  Receipt Date: 20240228
  Transmission Date: 20240410
  Serious: Yes (Hospitalization, Other)
  Sender: FDA-Public Use
  Company Number: RS-JNJFOC-20240263801

PATIENT
  Age: 37 Year
  Sex: Female

DRUGS (2)
  1. RISPERIDONE [Suspect]
     Active Substance: RISPERIDONE
     Indication: Schizophrenia
     Route: 065
  2. RISPERIDONE [Suspect]
     Active Substance: RISPERIDONE
     Route: 065

REACTIONS (7)
  - Hallucination, auditory [Recovered/Resolved]
  - Intentional self-injury [Recovered/Resolved]
  - Abnormal behaviour [Recovered/Resolved]
  - Weight increased [Unknown]
  - Amenorrhoea [Recovered/Resolved]
  - Blood prolactin increased [Recovered/Resolved]
  - Treatment noncompliance [Unknown]
